FAERS Safety Report 23938879 (Version 2)
Quarter: 2024Q2

REPORT INFORMATION
  Report Type: Spontaneous
  Country: JP (occurrence: JP)
  Receive Date: 20240604
  Receipt Date: 20240628
  Transmission Date: 20240716
  Serious: Yes (Hospitalization)
  Sender: FDA-Public Use
  Company Number: None

PATIENT
  Age: 57 Year
  Sex: Female

DRUGS (3)
  1. BOTOX [Suspect]
     Active Substance: BOTULINUM TOXIN TYPE A\ONABOTULINUMTOXINA
     Indication: Muscle spasms
     Dosage: TIME INTERVAL: AS NECESSARY: 425 IU
     Route: 030
     Dates: start: 20231228, end: 20231228
  2. BOTOX [Suspect]
     Active Substance: BOTULINUM TOXIN TYPE A\ONABOTULINUMTOXINA
     Indication: Muscle spasms
     Dosage: TIME INTERVAL: AS NECESSARY: 200 IU
     Route: 030
  3. BOTOX [Suspect]
     Active Substance: BOTULINUM TOXIN TYPE A\ONABOTULINUMTOXINA
     Indication: Muscle spasms
     Dosage: TIME INTERVAL: AS NECESSARY: 200 IU
     Route: 030

REACTIONS (2)
  - Fall [Recovered/Resolved]
  - Asthenia [Recovered/Resolved]

NARRATIVE: CASE EVENT DATE: 20240103
